FAERS Safety Report 8833572 (Version 1)
Quarter: 2012Q4

REPORT INFORMATION
  Report Type: Report from Study
  Country: ES (occurrence: ES)
  Receive Date: 20121010
  Receipt Date: 20121010
  Transmission Date: 20130627
  Serious: Yes (Death)
  Sender: FDA-Public Use
  Company Number: ES-BAYER-2012-105987

PATIENT
  Age: 78 Day
  Sex: Male

DRUGS (2)
  1. ACETYLSALICYLIC ACID({=100 MG) [Suspect]
  2. CLOPIDOGREL [Interacting]

REACTIONS (1)
  - Cerebral haemorrhage [Fatal]
